FAERS Safety Report 19211204 (Version 1)
Quarter: 2021Q2

REPORT INFORMATION
  Report Type: Spontaneous
  Country: CA (occurrence: CA)
  Receive Date: 20210504
  Receipt Date: 20210504
  Transmission Date: 20210717
  Serious: Yes (Other)
  Sender: FDA-Public Use
  Company Number: CA-ASTRAZENECA-2021A366947

PATIENT
  Sex: Female

DRUGS (10)
  1. VENTOLIN [Suspect]
     Active Substance: ALBUTEROL SULFATE
     Dosage: EVERY 1 DAYS UNKNOWN
     Route: 065
  2. TIOTROPIUM BROMIDE [Suspect]
     Active Substance: TIOTROPIUM BROMIDE
     Dosage: 2 DF, 1 EVERY 1 DAYS
     Route: 065
  3. BUDESONIDE+FORMOTEROL FUMARATE INHALATION AEROSOL [Suspect]
     Active Substance: BUDESONIDE\FORMOTEROL FUMARATE
     Dosage: 2 DF, 3 EVERY 1 DAYS
     Route: 055
  4. BREO ELLIPTA [Suspect]
     Active Substance: FLUTICASONE FUROATE\VILANTEROL TRIFENATATE
     Dosage: 1.0DF UNKNOWN
     Route: 055
  5. OMALIZUMAB. [Suspect]
     Active Substance: OMALIZUMAB
     Route: 065
  6. PULMICORT TURBUHALER [Suspect]
     Active Substance: BUDESONIDE
     Dosage: 2 DF, 2 EVERY 1 DAYS
     Route: 055
  7. MEPOLIZUMAB [Suspect]
     Active Substance: MEPOLIZUMAB
     Indication: ASTHMA
     Dosage: 100.0MG UNKNOWN
     Route: 042
  8. FORMOTEROL FUMARATE/ MOMETASON E FUROATE [Suspect]
     Active Substance: FORMOTEROL FUMARATE\MOMETASONE FUROATE
     Dosage: 2 DF, 2 EVERY 1 DAYS
     Route: 065
  9. OMALIZUMAB. [Suspect]
     Active Substance: OMALIZUMAB
     Route: 065
  10. VENTOLIN [Suspect]
     Active Substance: ALBUTEROL SULFATE
     Dosage: 1.0DF UNKNOWN
     Route: 065

REACTIONS (3)
  - Bronchial obstruction [Unknown]
  - Asthma [Unknown]
  - Drug ineffective [Unknown]
